FAERS Safety Report 8771007 (Version 4)
Quarter: 2015Q1

REPORT INFORMATION
  Report Type: Spontaneous
  Country: US (occurrence: US)
  Receive Date: 20120906
  Receipt Date: 20150209
  Transmission Date: 20150721
  Serious: Yes (Hospitalization, Other)
  Sender: FDA-Public Use
  Company Number: US-009507513-1209USA000763

PATIENT
  Sex: Male
  Weight: 96.6 kg

DRUGS (3)
  1. PROPECIA [Suspect]
     Active Substance: FINASTERIDE
     Indication: ALOPECIA
     Dosage: 1 MG, UNK
     Route: 048
     Dates: start: 2008, end: 2012
  2. FINASTERIDE. [Suspect]
     Active Substance: FINASTERIDE
     Indication: ALOPECIA
     Dosage: 5 MG, QD
     Dates: start: 20081217, end: 20100910
  3. FINASTERIDE. [Suspect]
     Active Substance: FINASTERIDE
     Indication: ALOPECIA
     Dosage: 5 MG, QD
     Dates: start: 20091023, end: 20100729

REACTIONS (12)
  - Pelvic fracture [Unknown]
  - Asthenia [Unknown]
  - Depression [Unknown]
  - Sexual dysfunction [Unknown]
  - Libido decreased [Unknown]
  - Poor quality sleep [Unknown]
  - Erectile dysfunction [Unknown]
  - Cognitive disorder [Unknown]
  - Tracheal operation [Unknown]
  - Head injury [Unknown]
  - Splenectomy [Unknown]
  - Urethral operation [Unknown]

NARRATIVE: CASE EVENT DATE: 2008
